FAERS Safety Report 4478789-5 (Version None)
Quarter: 2004Q4

REPORT INFORMATION
  Report Type: 
  Country: None (occurrence: None)
  Receive Date: 20040923
  Receipt Date: 20040716
  Transmission Date: 20050328
  Serious: No
  Sender: FDA-Public Use
  Company Number: USA040568819

PATIENT
  Age: 91 Year
  Sex: Female

DRUGS (1)
  1. FORTEO [Suspect]
     Indication: OSTEOPOROSIS
     Dosage: 20 UG
     Dates: start: 20040428

REACTIONS (3)
  - INJECTION SITE MASS [None]
  - INJECTION SITE PAIN [None]
  - PAIN IN EXTREMITY [None]
